FAERS Safety Report 7367600-0 (Version None)
Quarter: 2011Q1

REPORT INFORMATION
  Report Type: 
  Country: None (occurrence: None)
  Receive Date: 20110322
  Receipt Date: 20110315
  Transmission Date: 20110831
  Serious: Yes (Hospitalization, Other)
  Sender: FDA-Public Use
  Company Number: BR-PFIZER INC-2009261552

PATIENT
  Age: 54 Year
  Sex: Male
  Weight: 100 kg

DRUGS (12)
  1. DETRUSITOL LA [Suspect]
     Indication: HYPERTONIC BLADDER
  2. AMITRIPTYLINE [Concomitant]
     Indication: DEPRESSION
     Dosage: 75 MG, UNK
     Dates: start: 20050101
  3. GLIBENCLAMIDE [Concomitant]
     Indication: DIABETES MELLITUS
     Dosage: 5 MG, 2 TABLETS PER DAY
  4. DETRUSITOL LA [Suspect]
     Indication: URINARY INCONTINENCE
     Dosage: 4 MG, 1X/DAY
     Route: 048
     Dates: start: 20070101
  5. CAPTOPRIL [Concomitant]
     Indication: BLOOD PRESSURE INCREASED
     Dosage: UNK MG, UNK
     Dates: start: 20050101
  6. CLOXAZOLAM [Concomitant]
     Dosage: UNK
  7. ALPRAZOLAM [Concomitant]
     Indication: DEPRESSION
     Dosage: 2 MG, UNK
     Dates: start: 20050101
  8. FENOBARBITAL [Concomitant]
     Indication: DEPRESSION
     Dosage: 100 MG, UNK
     Dates: start: 20050101
  9. OXYBUTYNIN [Suspect]
     Indication: POLLAKIURIA
     Dosage: UNK
  10. PROPRANOLOL [Concomitant]
     Indication: BLOOD PRESSURE INCREASED
     Dosage: UNK MG, UNK
     Dates: start: 20050101
  11. METFORMIN [Concomitant]
     Indication: DIABETES MELLITUS
     Dosage: 850 MG, UNK
  12. CLONAZEPAM [Concomitant]
     Indication: SLEEP DISORDER
     Dosage: 2 MG, UNK
     Dates: start: 20050101

REACTIONS (10)
  - WEIGHT INCREASED [None]
  - INSOMNIA [None]
  - URINARY INCONTINENCE [None]
  - DRUG INEFFECTIVE [None]
  - URINARY RETENTION [None]
  - CHOLECYSTECTOMY [None]
  - NOCTURIA [None]
  - BLADDER DISCOMFORT [None]
  - BLOOD PRESSURE INCREASED [None]
  - DYSURIA [None]
